FAERS Safety Report 12398743 (Version 1)
Quarter: 2016Q2

REPORT INFORMATION
  Report Type: Spontaneous
  Country: US (occurrence: US)
  Receive Date: 20160524
  Receipt Date: 20160524
  Transmission Date: 20160815
  Serious: No
  Sender: FDA-Public Use
  Company Number: US-BIOGEN-2016BI00225421

PATIENT

DRUGS (2)
  1. TYSABRI [Suspect]
     Active Substance: NATALIZUMAB
     Indication: MULTIPLE SCLEROSIS
  2. REBIF [Concomitant]
     Active Substance: INTERFERON BETA-1A

REACTIONS (1)
  - Decreased immune responsiveness [Unknown]
